FAERS Safety Report 13601518 (Version 1)
Quarter: 2017Q2

REPORT INFORMATION
  Report Type: Spontaneous
  Country: US (occurrence: US)
  Receive Date: 20170523
  Receipt Date: 20170523
  Transmission Date: 20170830
  Serious: Yes (Other)
  Sender: FDA-Public Use
  Company Number: None

PATIENT
  Age: 40 Year
  Sex: Female

DRUGS (6)
  1. LATANOPROST. [Concomitant]
     Active Substance: LATANOPROST
  2. TIMOPTIC-XE [Concomitant]
     Active Substance: TIMOLOL MALEATE
  3. TRAVATAN Z [Concomitant]
     Active Substance: TRAVOPROST
  4. LUMIGAN [Concomitant]
     Active Substance: BIMATOPROST
  5. XALATAN [Suspect]
     Active Substance: LATANOPROST
  6. LATANOPROST. [Concomitant]
     Active Substance: LATANOPROST

REACTIONS (4)
  - Intraocular pressure increased [None]
  - Ocular hyperaemia [None]
  - Eye pain [None]
  - Eye irritation [None]

NARRATIVE: CASE EVENT DATE: 20070209
